FAERS Safety Report 5677576-X (Version None)
Quarter: 2008Q1

REPORT INFORMATION
  Report Type: 
  Country: None (occurrence: None)
  Receive Date: 20080324
  Receipt Date: 20080314
  Transmission Date: 20080703
  Serious: Yes (Other)
  Sender: FDA-Public Use
  Company Number: US-AMGEN-US270023

PATIENT
  Age: 26 Year
  Sex: Female

DRUGS (9)
  1. PROCRIT [Suspect]
     Indication: ANAEMIA
     Route: 058
     Dates: start: 20050101
  2. LASIX [Concomitant]
     Route: 048
  3. CAPTOPRIL [Concomitant]
     Route: 048
  4. DIGOXIN [Concomitant]
     Route: 048
  5. COREG [Concomitant]
     Route: 048
  6. ORTHO TRI-CYCLEN (ORTHO-MCNEIL) [Concomitant]
  7. ZYRTEC [Concomitant]
  8. LOVENOX [Concomitant]
  9. SINGULAIR [Concomitant]

REACTIONS (1)
  - BASAL CELL CARCINOMA [None]
